FAERS Safety Report 9548275 (Version 1)
Quarter: 2013Q3

REPORT INFORMATION
  Report Type: Spontaneous
  Country: US (occurrence: None)
  Receive Date: 20130711
  Receipt Date: 20130711
  Transmission Date: 20140515
  Serious: Yes (Other)
  Sender: FDA-Public Use
  Company Number: US-JNJFOC-20120607820

PATIENT
  Sex: 0
  Weight: 62.1 kg

DRUGS (1)
  1. DACOGEN (DECITABINE) LYOPHILIZED POWDER [Suspect]
     Indication: PRODUCT USED FOR UNKNOWN INDICATION
     Dosage: USING 5 DAY DOSING SCHEDULE AND COMPLETED THE FIRST CYCLE ??/??/?? THERAPY STOPPED

REACTIONS (1)
  - Bone marrow failure [None]
